FAERS Safety Report 18522953 (Version 1)
Quarter: 2020Q4

REPORT INFORMATION
  Report Type: Spontaneous
  Country: US (occurrence: US)
  Receive Date: 20201119
  Receipt Date: 20201119
  Transmission Date: 20210114
  Serious: No
  Sender: FDA-Public Use
  Company Number: US-SA-2020SA320729

PATIENT

DRUGS (3)
  1. ALLEGRA ALLERGY [Suspect]
     Active Substance: FEXOFENADINE HYDROCHLORIDE
     Indication: ANGIOEDEMA
     Dosage: NORMAL DOSE
  2. ALLEGRA ALLERGY [Suspect]
     Active Substance: FEXOFENADINE HYDROCHLORIDE
     Indication: DRUG HYPERSENSITIVITY
     Dosage: UNK UNK, BID
  3. ALLEGRA ALLERGY [Suspect]
     Active Substance: FEXOFENADINE HYDROCHLORIDE
     Indication: PHARYNGEAL SWELLING
     Dosage: UNK UNK, QD

REACTIONS (15)
  - Feeling abnormal [Unknown]
  - Headache [Unknown]
  - Off label use [Unknown]
  - Nausea [Unknown]
  - Throat tightness [Unknown]
  - Palpitations [Unknown]
  - Dry eye [Unknown]
  - Muscle twitching [Unknown]
  - Lethargy [Unknown]
  - Muscle spasms [Unknown]
  - Constipation [Unknown]
  - Insomnia [Unknown]
  - Withdrawal syndrome [Unknown]
  - Abdominal pain upper [Unknown]
  - Urinary tract discomfort [Unknown]
